FAERS Safety Report 12649270 (Version 2)
Quarter: 2016Q4

REPORT INFORMATION
  Report Type: Spontaneous
  Country: US (occurrence: US)
  Receive Date: 20160812
  Receipt Date: 20161123
  Transmission Date: 20170207
  Serious: No
  Sender: FDA-Public Use
  Company Number: US-PFIZER INC-2016380994

PATIENT
  Age: 77 Year
  Sex: Female
  Weight: 57.15 kg

DRUGS (2)
  1. LYRICA [Suspect]
     Active Substance: PREGABALIN
     Dosage: 25 MG, 1X/DAY (AT NIGHT ONLY)
  2. LYRICA [Suspect]
     Active Substance: PREGABALIN
     Indication: FIBROMYALGIA
     Dosage: 25 MG, 2X/DAY (25 MG IN THE MORNING AND 25 AT NIGHT)
     Dates: start: 201508, end: 201607

REACTIONS (5)
  - Depression [Recovered/Resolved]
  - Somnolence [Unknown]
  - Pain [Not Recovered/Not Resolved]
  - Dizziness [Unknown]
  - Breast pain [Recovered/Resolved]

NARRATIVE: CASE EVENT DATE: 201510
